FAERS Safety Report 11132350 (Version 1)
Quarter: 2015Q2

REPORT INFORMATION
  Report Type: Spontaneous
  Country: PL (occurrence: PL)
  Receive Date: 20150522
  Receipt Date: 20150522
  Transmission Date: 20150821
  Serious: Yes (Death, Life-Threatening, Other)
  Sender: FDA-Public Use
  Company Number: PL-ACTAVIS-2015-10309

PATIENT
  Age: 37 Year
  Sex: Male

DRUGS (2)
  1. ETOPOSIDE (UNKNOWN) [Suspect]
     Active Substance: ETOPOSIDE
     Indication: TESTICULAR YOLK SAC TUMOUR
     Dosage: UNK, ONE COURSE
     Route: 065
  2. CISPLATIN (UNKNOWN) [Suspect]
     Active Substance: CISPLATIN
     Indication: TESTICULAR YOLK SAC TUMOUR
     Dosage: UNK
     Route: 065

REACTIONS (4)
  - Pneumonia [Fatal]
  - Leukopenia [Not Recovered/Not Resolved]
  - Agranulocytosis [Not Recovered/Not Resolved]
  - Sepsis [Fatal]
